FAERS Safety Report 7638528-3 (Version None)
Quarter: 2011Q3

REPORT INFORMATION
  Report Type: 
  Country: None (occurrence: None)
  Receive Date: 20110727
  Receipt Date: 20110722
  Transmission Date: 20111222
  Serious: Yes (Other)
  Sender: FDA-Public Use
  Company Number: FR-ABBOTT-11P-056-0835952-00

PATIENT
  Age: 37 Year

DRUGS (7)
  1. MAGNE B6 [Concomitant]
     Indication: PRODUCT USED FOR UNKNOWN INDICATION
  2. ZOLPIDEM [Concomitant]
     Indication: PRODUCT USED FOR UNKNOWN INDICATION
  3. PRETERAX [Concomitant]
     Indication: PRODUCT USED FOR UNKNOWN INDICATION
  4. DEPAKOTE [Suspect]
  5. POTASSIUM CHLORIDE [Concomitant]
     Indication: PRODUCT USED FOR UNKNOWN INDICATION
  6. LOXAPINE HCL [Concomitant]
     Indication: PRODUCT USED FOR UNKNOWN INDICATION
  7. DEPAKOTE [Suspect]
     Indication: DYSTHYMIC DISORDER
     Route: 048
     Dates: start: 20110526, end: 20110617

REACTIONS (3)
  - OVERDOSE [None]
  - ENCEPHALOPATHY [None]
  - HYPERAMMONAEMIA [None]
